FAERS Safety Report 7380499-1 (Version None)
Quarter: 2011Q1

REPORT INFORMATION
  Report Type: 
  Country: None (occurrence: None)
  Receive Date: 20110329
  Receipt Date: 20110321
  Transmission Date: 20110831
  Serious: Yes (Hospitalization)
  Sender: FDA-Public Use
  Company Number: FR-ASTRAZENECA-2011SE16828

PATIENT
  Sex: Male

DRUGS (5)
  1. HYDROCORTISONE [Concomitant]
     Indication: HYPOPITUITARISM
     Route: 048
  2. CRESTOR [Suspect]
     Indication: HYPERCHOLESTEROLAEMIA
     Dosage: DAILY
     Route: 048
     Dates: start: 20100101, end: 20100120
  3. ZOCOR [Suspect]
     Indication: HYPERCHOLESTEROLAEMIA
     Dosage: DAILY
     Route: 048
     Dates: start: 20090101, end: 20100101
  4. ANDROTARDYL [Concomitant]
     Indication: HYPOPITUITARISM
     Route: 030
  5. LEVOTHYROX [Concomitant]
     Indication: HYPOPITUITARISM
     Route: 048

REACTIONS (3)
  - LIPASE INCREASED [None]
  - CYTOLYTIC HEPATITIS [None]
  - VOMITING [None]
